FAERS Safety Report 4307500-3 (Version None)
Quarter: 2004Q1

REPORT INFORMATION
  Report Type: 
  Country: None (occurrence: None)
  Receive Date: 20040226
  Receipt Date: 20040217
  Transmission Date: 20041129
  Serious: Yes (Other)
  Sender: FDA-Public Use
  Company Number: 2004200263FR

PATIENT

DRUGS (1)
  1. XALATAN [Suspect]
     Dosage: UNK, UNK, OPHTHALMIC
     Route: 047

REACTIONS (1)
  - INTRAOCULAR PRESSURE INCREASED [None]
